FAERS Safety Report 10607292 (Version 1)
Quarter: 2014Q4

REPORT INFORMATION
  Report Type: Spontaneous
  Country: US (occurrence: None)
  Receive Date: 20141124
  Receipt Date: 20141124
  Transmission Date: 20150529
  Serious: No
  Sender: FDA-Public Use
  Company Number: None

PATIENT
  Age: 70 Year
  Sex: Female

DRUGS (1)
  1. NEXAVAR [Suspect]
     Active Substance: SORAFENIB
     Indication: HEPATIC CANCER
     Route: 048
     Dates: start: 20141024, end: 20141120

REACTIONS (5)
  - Stomatitis [None]
  - Asthenia [None]
  - Fatigue [None]
  - Syncope [None]
  - Pyrexia [None]

NARRATIVE: CASE EVENT DATE: 20141121
